FAERS Safety Report 26197929 (Version 1)
Quarter: 2025Q4

REPORT INFORMATION
  Report Type: Spontaneous
  Country: US (occurrence: US)
  Receive Date: 20251224
  Receipt Date: 20251224
  Transmission Date: 20260118
  Serious: Yes (Hospitalization, Other)
  Sender: ALEMBIC
  Company Number: US-ALEMBIC PHARMACUETICALS LIMITED-2025SCAL001748

PATIENT

DRUGS (3)
  1. FLUOROURACIL [Suspect]
     Active Substance: FLUOROURACIL
     Indication: Anal squamous cell carcinoma
     Dosage: 4000 MG/M2 OVER 96 H FOR 2 CYCLES
     Route: 042
  2. FLUOROURACIL [Suspect]
     Active Substance: FLUOROURACIL
     Dosage: 50 PERCENT DOSE REDUCTION
     Route: 042
  3. MITOMYCIN C [Suspect]
     Active Substance: MITOMYCIN
     Indication: Anal squamous cell carcinoma
     Dosage: 8 MG/M2 ADMINISTERED OVER 30 MIN
     Route: 065

REACTIONS (14)
  - Toxicity to various agents [Unknown]
  - Urinary tract infection [Unknown]
  - Bacteriuria [Unknown]
  - Pulmonary congestion [Unknown]
  - Asthenia [Unknown]
  - Pallor [Unknown]
  - Malnutrition [Unknown]
  - Neutropenia [Unknown]
  - Mucosal inflammation [Recovering/Resolving]
  - Dyspnoea [Unknown]
  - Diarrhoea [Unknown]
  - Nausea [Unknown]
  - Vomiting [Unknown]
  - Hypophagia [Unknown]
